FAERS Safety Report 20224201 (Version 3)
Quarter: 2023Q1

REPORT INFORMATION
  Report Type: Spontaneous
  Country: US (occurrence: US)
  Receive Date: 20211223
  Receipt Date: 20230307
  Transmission Date: 20230417
  Serious: Yes (Other)
  Sender: FDA-Public Use
  Company Number: US-TAKEDA-2021TUS080382

PATIENT
  Sex: Male

DRUGS (9)
  1. NINLARO [Suspect]
     Active Substance: IXAZOMIB CITRATE
     Indication: Plasma cell myeloma in remission
     Dosage: 4 MILLIGRAM
     Route: 048
     Dates: start: 20160826, end: 202211
  2. AMLODIPINE [Concomitant]
     Active Substance: AMLODIPINE BESYLATE
     Dosage: 10 MILLIGRAM
     Route: 065
  3. ASPIRIN [Concomitant]
     Active Substance: ASPIRIN
     Dosage: 81 MILLIGRAM
     Route: 065
  4. LABETALOL [Concomitant]
     Active Substance: LABETALOL\LABETALOL HYDROCHLORIDE
     Dosage: 200 MILLIGRAM
     Route: 065
  5. PRAVASTATIN [Concomitant]
     Active Substance: PRAVASTATIN
     Dosage: 20 MILLIGRAM
     Route: 065
  6. CYANOCOBALAMIN [Concomitant]
     Active Substance: CYANOCOBALAMIN
     Dosage: 1000 MICROGRAM
     Route: 065
  7. DARZALEX [Concomitant]
     Active Substance: DARATUMUMAB
     Dosage: 100MG/5M
     Route: 065
  8. POMALYST [Concomitant]
     Active Substance: POMALIDOMIDE
     Dosage: 2 MILLIGRAM
     Route: 065
  9. REVLIMID [Concomitant]
     Active Substance: LENALIDOMIDE
     Dosage: 5 MILLIGRAM
     Route: 065

REACTIONS (4)
  - Neuropathy peripheral [Unknown]
  - Peripheral swelling [Unknown]
  - White blood cell count decreased [Unknown]
  - Product dose omission issue [Unknown]
